APPROVED DRUG PRODUCT: BAL
Active Ingredient: DIMERCAPROL
Strength: 10%
Dosage Form/Route: INJECTABLE;INJECTION
Application: N005939 | Product #001
Applicant: PROVEPHARM SAS
Approved: Approved Prior to Jan 1, 1982 | RLD: Yes | RS: Yes | Type: RX